FAERS Safety Report 12758591 (Version 1)
Quarter: 2016Q3

REPORT INFORMATION
  Report Type: Spontaneous
  Country: US (occurrence: US)
  Receive Date: 20160917
  Receipt Date: 20160917
  Transmission Date: 20161109
  Serious: Yes (Other)
  Sender: FDA-Public Use
  Company Number: None

PATIENT
  Age: 19 Year
  Sex: Female
  Weight: 67.5 kg

DRUGS (1)
  1. HYOCYAMINE 0.125 MG [Suspect]
     Active Substance: HYOSCYAMINE
     Indication: ABDOMINAL PAIN UPPER
     Route: 060
     Dates: start: 20160818, end: 20160917

REACTIONS (2)
  - Heart rate irregular [None]
  - Syncope [None]

NARRATIVE: CASE EVENT DATE: 20160822
